FAERS Safety Report 7611773-9 (Version None)
Quarter: 2011Q3

REPORT INFORMATION
  Report Type: 
  Country: None (occurrence: None)
  Receive Date: 20110715
  Receipt Date: 20110711
  Transmission Date: 20111222
  Serious: Yes (Death)
  Sender: FDA-Public Use
  Company Number: TW-SANOFI-AVENTIS-2011SA044673

PATIENT
  Sex: Male

DRUGS (1)
  1. OXALIPLATIN [Suspect]
     Dosage: INFUSION
     Route: 065

REACTIONS (1)
  - ANAPHYLACTIC SHOCK [None]
